FAERS Safety Report 11828219 (Version 1)
Quarter: 2015Q4

REPORT INFORMATION
  Report Type: Spontaneous
  Country: JP (occurrence: JP)
  Receive Date: 20151211
  Receipt Date: 20151211
  Transmission Date: 20160305
  Serious: Yes (Death)
  Sender: FDA-Public Use
  Company Number: JP-FRESENIUS KABI-FK201506521

PATIENT
  Age: 70 Year
  Sex: Male

DRUGS (6)
  1. PREDNISONE. [Suspect]
     Active Substance: PREDNISONE
     Indication: MYELOFIBROSIS
     Dates: start: 20131216
  2. METHYLPREDNISOLONE. [Suspect]
     Active Substance: METHYLPREDNISOLONE
     Indication: MYELOFIBROSIS
  3. ETOPOSIDE (MANUFACTURER UNKNOWN) [Suspect]
     Active Substance: ETOPOSIDE
     Indication: MYELOFIBROSIS
     Route: 065
     Dates: start: 20131225
  4. AMPHOTERICIN B. [Suspect]
     Active Substance: AMPHOTERICIN B
     Indication: MYELOFIBROSIS
     Dates: start: 20140107
  5. CICLOSPORIN [Suspect]
     Active Substance: CYCLOSPORINE
     Indication: MYELOFIBROSIS
     Dates: start: 20131221
  6. MICAFUNGIN [Suspect]
     Active Substance: MICAFUNGIN
     Indication: MYELOFIBROSIS

REACTIONS (2)
  - Trichosporon infection [Fatal]
  - Acute kidney injury [Fatal]
